FAERS Safety Report 5485128-X (Version None)
Quarter: 2007Q4

REPORT INFORMATION
  Report Type: 
  Country: None (occurrence: None)
  Receive Date: 20071010
  Receipt Date: 20071010
  Transmission Date: 20080405
  Serious: Yes (Other)
  Sender: FDA-Public Use
  Company Number: None

PATIENT
  Sex: Female

DRUGS (12)
  1. REVLIMID [Suspect]
     Indication: MULTIPLE MYELOMA
     Dosage: 5MG DAILY X21D/28D PO
     Route: 048
  2. REVLIMID [Suspect]
     Indication: MULTIPLE MYELOMA
     Dosage: 10MG DAILY X21D/28D PO
     Route: 048
  3. PROCRIT [Concomitant]
  4. AREDIA [Concomitant]
  5. VICODIN [Concomitant]
  6. LOVASTATIN [Concomitant]
  7. ATENOLOL [Concomitant]
  8. REGULAR INSULIN [Concomitant]
  9. GLIPIZIDE [Concomitant]
  10. FLUOXETINE [Concomitant]
  11. GABAPENTIN [Concomitant]
  12. FEXOFENADINE [Concomitant]

REACTIONS (7)
  - ASTHENIA [None]
  - DRUG INTOLERANCE [None]
  - EPISTAXIS [None]
  - MUSCLE SPASMS [None]
  - NEUTROPENIA [None]
  - NO THERAPEUTIC RESPONSE [None]
  - THROMBOCYTOPENIA [None]
